FAERS Safety Report 6054048-4 (Version None)
Quarter: 2009Q1

REPORT INFORMATION
  Report Type: 
  Country: None (occurrence: None)
  Receive Date: 20090127
  Receipt Date: 20090122
  Transmission Date: 20090719
  Serious: Yes (Other)
  Sender: FDA-Public Use
  Company Number: CA-ASTRAZENECA-2008UW28374

PATIENT
  Age: 39 Year
  Sex: Male

DRUGS (4)
  1. PULMICORT [Suspect]
     Indication: EOSINOPHILIC OESOPHAGITIS
     Route: 055
     Dates: start: 20080901, end: 20081201
  2. AVAN [Concomitant]
     Indication: ASTHMA
  3. VENTOLIN [Concomitant]
     Indication: ASTHMA
  4. NASONEX [Concomitant]
     Indication: ASTHMA

REACTIONS (1)
  - ERECTILE DYSFUNCTION [None]
